FAERS Safety Report 6659661-9 (Version None)
Quarter: 2010Q1

REPORT INFORMATION
  Report Type: 
  Country: None (occurrence: None)
  Receive Date: 20100330
  Receipt Date: 20100318
  Transmission Date: 20100710
  Serious: Yes (Hospitalization)
  Sender: FDA-Public Use
  Company Number: DE-AMGEN-US401219

PATIENT
  Age: 70 Year
  Sex: Male
  Weight: 102 kg

DRUGS (4)
  1. ENBREL [Suspect]
     Indication: RHEUMATOID ARTHRITIS
     Route: 058
     Dates: start: 20070101
  2. NALOXONE [Concomitant]
     Indication: NEURALGIA
     Dosage: TWO DOSAGE FORMS DAILY
     Route: 048
     Dates: start: 20070101
  3. PREDNISOLONE [Concomitant]
     Indication: RHEUMATOID ARTHRITIS
     Route: 048
     Dates: start: 20070101
  4. TILIDINE [Concomitant]
     Indication: NEURALGIA
     Dosage: TWO DOSAGE FORMS DAILY
     Route: 048
     Dates: start: 20070101

REACTIONS (8)
  - CONDITION AGGRAVATED [None]
  - DISTURBANCE IN ATTENTION [None]
  - GASTRITIS [None]
  - GASTROENTERITIS NOROVIRUS [None]
  - PNEUMONIA [None]
  - RESPIRATORY FAILURE [None]
  - SMALL INTESTINAL OBSTRUCTION [None]
  - URINARY TRACT INFECTION [None]
